FAERS Safety Report 5906396-3 (Version None)
Quarter: 2008Q4

REPORT INFORMATION
  Report Type: 
  Country: None (occurrence: None)
  Receive Date: 20081002
  Receipt Date: 20080424
  Transmission Date: 20090506
  Serious: Yes (Death, Life-Threatening, Hospitalization)
  Sender: FDA-Public Use
  Company Number: PHEH2008US03735

PATIENT
  Age: 71 Year
  Sex: Female

DRUGS (1)
  1. ZOMETA [Suspect]
     Indication: METASTASES TO BONE
     Dosage: 4 MG, ONE DOSE
     Route: 042

REACTIONS (4)
  - COMA [None]
  - DYSSTASIA [None]
  - MALIGNANT NEOPLASM PROGRESSION [None]
  - VOMITING [None]
